FAERS Safety Report 8430117-6 (Version None)
Quarter: 2012Q2

REPORT INFORMATION
  Report Type: 
  Country: None (occurrence: None)
  Receive Date: 20120612
  Receipt Date: 20120530
  Transmission Date: 20120825
  Serious: Yes (Death, Life-Threatening, Other)
  Sender: FDA-Public Use
  Company Number: BR-ROCHE-1073992

PATIENT
  Age: 55 Year
  Sex: Male

DRUGS (6)
  1. FLUOROURACIL [Concomitant]
     Route: 042
  2. FLUOROURACIL [Concomitant]
     Indication: GASTRIC CANCER
     Route: 040
  3. HERCEPTIN [Suspect]
     Dates: end: 20110430
  4. LEUCOVORIN CALCIUM [Concomitant]
     Indication: GASTRIC CANCER
  5. HERCEPTIN [Suspect]
     Indication: GASTRIC CANCER
     Dates: start: 20101115
  6. OXALIPLATIN [Concomitant]
     Indication: GASTRIC CANCER

REACTIONS (5)
  - DEATH [None]
  - VOMITING [None]
  - NAUSEA [None]
  - PERIPHERAL SENSORY NEUROPATHY [None]
  - DISEASE PROGRESSION [None]
